FAERS Safety Report 4563943-4 (Version None)
Quarter: 2005Q1

REPORT INFORMATION
  Report Type: 
  Country: None (occurrence: None)
  Receive Date: 20050128
  Receipt Date: 20050125
  Transmission Date: 20050727
  Serious: Yes (Death)
  Sender: FDA-Public Use
  Company Number: US-JNJFOC-20040902536

PATIENT
  Sex: Male
  Weight: 88 kg

DRUGS (1)
  1. DURAGESIC-100 [Suspect]
     Route: 062
     Dates: start: 19991201, end: 20040101

REACTIONS (1)
  - MYOCARDIAL INFARCTION [None]
